FAERS Safety Report 9146151 (Version 1)
Quarter: 2013Q1

REPORT INFORMATION
  Report Type: Spontaneous
  Country: VE (occurrence: VE)
  Receive Date: 20130307
  Receipt Date: 20130307
  Transmission Date: 20140127
  Serious: Yes (Hospitalization)
  Sender: FDA-Public Use
  Company Number: VE-PFIZER INC-2013077502

PATIENT
  Age: 67 Year
  Sex: Female

DRUGS (2)
  1. CADUET [Suspect]
     Dosage: 5/20 MG, 1X/DAY
     Dates: start: 2011
  2. ZOLOFT [Concomitant]
     Dosage: 50 MG, UNK
     Dates: start: 2011

REACTIONS (1)
  - Pneumonia [Unknown]
